FAERS Safety Report 18905157 (Version 2)
Quarter: 2021Q1

REPORT INFORMATION
  Report Type: Spontaneous
  Country: ES (occurrence: ES)
  Receive Date: 20210217
  Receipt Date: 20210226
  Transmission Date: 20210420
  Serious: Yes (Other)
  Sender: FDA-Public Use
  Company Number: ES-TEVA-2021-ES-1879369

PATIENT
  Age: 31 Year
  Sex: Female

DRUGS (11)
  1. SERTRALINE [Concomitant]
     Active Substance: SERTRALINE HYDROCHLORIDE
     Indication: BEHAVIOUR DISORDER
     Dosage: 25 MILLIGRAM DAILY;
     Route: 065
  2. AMOXICILLIN/CLAVULANIC ACID [Concomitant]
     Active Substance: AMOXICILLIN\CLAVULANIC ACID
     Indication: URINARY TRACT INFECTION
     Route: 065
  3. DIAZEPAM. [Concomitant]
     Active Substance: DIAZEPAM
     Indication: BEHAVIOUR DISORDER
     Dosage: 10 MILLIGRAM DAILY;
     Route: 065
  4. IBUPROFEN. [Concomitant]
     Active Substance: IBUPROFEN
     Indication: INFLAMMATION
     Dosage: 1800 MILLIGRAM DAILY; EVERY 8 HOURS
     Route: 065
  5. QUETIAPINE. [Suspect]
     Active Substance: QUETIAPINE
     Indication: BEHAVIOUR DISORDER
     Dosage: 25 MILLIGRAM DAILY;
     Route: 065
  6. QUETIAPINE. [Interacting]
     Active Substance: QUETIAPINE
     Dosage: 300 MILLIGRAM DAILY;
     Route: 065
     Dates: start: 20110921
  7. QUETIAPINE. [Interacting]
     Active Substance: QUETIAPINE
     Dosage: 100 MILLIGRAM DAILY;
     Route: 065
     Dates: start: 20110905
  8. OMEPRAZOLE. [Concomitant]
     Active Substance: OMEPRAZOLE
     Indication: PRODUCT USED FOR UNKNOWN INDICATION
     Dosage: 20 MILLIGRAM DAILY;
     Route: 065
  9. METRONIDAZOLE. [Interacting]
     Active Substance: METRONIDAZOLE
     Indication: ECZEMA
     Dosage: 500 MILLIGRAM DAILY;
     Route: 065
  10. CLONAZEPAM. [Concomitant]
     Active Substance: CLONAZEPAM
     Indication: BEHAVIOUR DISORDER
     Dosage: .5 MILLIGRAM DAILY;
     Route: 065
  11. ACETAMINOPHEN. [Concomitant]
     Active Substance: ACETAMINOPHEN
     Indication: INFLAMMATION
     Dosage: 3 GRAM DAILY; EVERY 8 HOURS
     Route: 065

REACTIONS (3)
  - Sedation [Unknown]
  - Parkinsonism [Recovered/Resolved]
  - Drug interaction [Recovered/Resolved]

NARRATIVE: CASE EVENT DATE: 2011
